FAERS Safety Report 8622975-7 (Version None)
Quarter: 2012Q3

REPORT INFORMATION
  Report Type: 
  Country: None (occurrence: None)
  Receive Date: 20120827
  Receipt Date: 20120823
  Transmission Date: 20120928
  Serious: No
  Sender: FDA-Public Use
  Company Number: PHEH2012US016570

PATIENT
  Sex: Male

DRUGS (6)
  1. LEVETIRACETAM [Concomitant]
  2. CARVEDILOL [Concomitant]
  3. ISOSORBIDE [Concomitant]
  4. RESTORIL [Concomitant]
  5. TASIGNA [Suspect]
  6. SIMVASTATIN [Concomitant]

REACTIONS (2)
  - CONFUSIONAL STATE [None]
  - CHILLS [None]
